FAERS Safety Report 4304252-8 (Version None)
Quarter: 2004Q1

REPORT INFORMATION
  Report Type: 
  Country: None (occurrence: None)
  Receive Date: 20040225
  Receipt Date: 20040213
  Transmission Date: 20041129
  Serious: Yes (Hospitalization)
  Sender: FDA-Public Use
  Company Number: WAES 0402AUS00165

PATIENT
  Age: 73 Year
  Sex: Female

DRUGS (8)
  1. AMOXICILLIN AND CLAVULANATE POTASSIUM [Concomitant]
  2. DIGOXIN [Suspect]
  3. ERYTHROMYCIN [Suspect]
     Route: 048
  4. ISOSORBIDE MONONITRATE [Concomitant]
  5. PREDNISONE [Concomitant]
  6. RABEPRAZOLE SODIUM [Concomitant]
  7. ZOCOR [Suspect]
     Route: 048
     Dates: end: 20031009
  8. VERAPAMIL [Suspect]
     Route: 048

REACTIONS (3)
  - BLOOD CREATINE PHOSPHOKINASE INCREASED [None]
  - DRUG INTERACTION [None]
  - RHABDOMYOLYSIS [None]
